FAERS Safety Report 11435139 (Version 2)
Quarter: 2015Q3

REPORT INFORMATION
  Report Type: Report from Study
  Country: US (occurrence: US)
  Receive Date: 20150831
  Receipt Date: 20150908
  Transmission Date: 20151125
  Serious: Yes (Hospitalization, Other)
  Sender: FDA-Public Use
  Company Number: US-EXELIXIS-XL18415005629

PATIENT
  Age: 70 Year
  Sex: Male

DRUGS (15)
  1. ABIRATERONE [Concomitant]
     Active Substance: ABIRATERONE
     Dosage: 1000 MG, QD
     Route: 048
     Dates: start: 20130821, end: 20150831
  2. OMEGA-3 FATTY ACIDS [Concomitant]
     Active Substance: OMEGA-3 FATTY ACIDS
  3. PREDNISONE. [Concomitant]
     Active Substance: PREDNISONE
     Dosage: 5 MG, BID
     Route: 048
     Dates: start: 20130821, end: 20150831
  4. LEUPROLIDE ACETATE. [Concomitant]
     Active Substance: LEUPROLIDE ACETATE
  5. LOSARTAN. [Concomitant]
     Active Substance: LOSARTAN
  6. METOPROLOL [Concomitant]
     Active Substance: METOPROLOL
  7. SIMVASTATIN. [Concomitant]
     Active Substance: SIMVASTATIN
  8. CALCIUM + VITAMIN D [Concomitant]
     Active Substance: CALCIUM\VITAMIN D
  9. XL184 [Suspect]
     Active Substance: CABOZANTINIB
     Indication: PROSTATE CANCER
     Dosage: 20 MG, QD
     Route: 048
     Dates: start: 20130821, end: 20150810
  10. AMLODIPINE [Concomitant]
     Active Substance: AMLODIPINE BESYLATE
  11. ASPIRIN. [Concomitant]
     Active Substance: ASPIRIN
  12. CLONIDINE. [Concomitant]
     Active Substance: CLONIDINE
  13. AMOXICILLIN. [Concomitant]
     Active Substance: AMOXICILLIN
  14. SILDENAFIL. [Concomitant]
     Active Substance: SILDENAFIL
  15. POTASSIUM CHLORIDE. [Concomitant]
     Active Substance: POTASSIUM CHLORIDE

REACTIONS (3)
  - Electrocardiogram QT prolonged [Unknown]
  - Atrial fibrillation [Unknown]
  - Anaemia [Unknown]

NARRATIVE: CASE EVENT DATE: 20150821
